FAERS Safety Report 8556234-8 (Version None)
Quarter: 2012Q3

REPORT INFORMATION
  Report Type: 
  Country: None (occurrence: None)
  Receive Date: 20120719
  Receipt Date: 20120717
  Transmission Date: 20120928
  Serious: Yes (Hospitalization)
  Sender: FDA-Public Use
  Company Number: SP05889

PATIENT
  Age: 66 Year
  Sex: Female

DRUGS (10)
  1. ZOVIRAX [Concomitant]
  2. ZOLTUM [Concomitant]
  3. FLAGYL [Concomitant]
  4. OSMOPREP [Suspect]
     Indication: BOWEL PREPARATION
     Dosage: ORAL
     Route: 048
     Dates: start: 20120528, end: 20120528
  5. ZYMAD [Concomitant]
  6. ACTONEL [Concomitant]
  7. OROCAL D3 [Concomitant]
  8. LEVOTHYROXINE SODIUM [Concomitant]
  9. ATORVASTATIN [Concomitant]
  10. ACETAMINOPHEN [Concomitant]

REACTIONS (9)
  - URINARY INCONTINENCE [None]
  - ANTEROGRADE AMNESIA [None]
  - DISORIENTATION [None]
  - CONFUSIONAL STATE [None]
  - VOMITING [None]
  - TREMOR [None]
  - MALAISE [None]
  - METABOLIC ACIDOSIS [None]
  - SOMNOLENCE [None]
